APPROVED DRUG PRODUCT: BIAXIN
Active Ingredient: CLARITHROMYCIN
Strength: 250MG/5ML
Dosage Form/Route: FOR SUSPENSION;ORAL
Application: N050698 | Product #002
Applicant: ABBVIE INC
Approved: Dec 23, 1993 | RLD: Yes | RS: No | Type: DISCN